FAERS Safety Report 8270555-8 (Version None)
Quarter: 2012Q2

REPORT INFORMATION
  Report Type: 
  Country: None (occurrence: None)
  Receive Date: 20120410
  Receipt Date: 20120406
  Transmission Date: 20120825
  Serious: Yes (Life-Threatening, Hospitalization)
  Sender: FDA-Public Use
  Company Number: FR-BRISTOL-MYERS SQUIBB COMPANY-16506792

PATIENT
  Age: 85 Year
  Sex: Female

DRUGS (7)
  1. ATENOLOL [Concomitant]
  2. LASIX [Concomitant]
  3. ZOLOFT [Concomitant]
  4. DIGOXIN [Concomitant]
  5. COUMADIN [Suspect]
     Indication: ATRIAL FIBRILLATION
     Dates: end: 20111227
  6. OXAZEPAM [Concomitant]
  7. FENOFIBRATE [Concomitant]

REACTIONS (3)
  - CEREBRAL HAEMATOMA [None]
  - INTERNATIONAL NORMALISED RATIO INCREASED [None]
  - FALL [None]
